FAERS Safety Report 23183676 (Version 1)
Quarter: 2023Q4

REPORT INFORMATION
  Report Type: Spontaneous
  Country: None (occurrence: CN)
  Receive Date: 20231114
  Receipt Date: 20231114
  Transmission Date: 20240109
  Serious: Yes (Other)
  Sender: FDA-Public Use
  Company Number: CN-Jiangsu Hansoh Pharmaceutical Co., Ltd-2148244

PATIENT
  Age: 33 Year
  Sex: Male
  Weight: 66 kg

DRUGS (3)
  1. GEMCITABINE [Suspect]
     Active Substance: GEMCITABINE
     Indication: Hodgkin^s disease
     Route: 041
     Dates: start: 20231001, end: 20231005
  2. BUSULFAN [Concomitant]
     Active Substance: BUSULFAN
     Route: 041
     Dates: start: 20231001, end: 20231003
  3. MELPHALAN [Concomitant]
     Active Substance: MELPHALAN
     Route: 041
     Dates: start: 20231005, end: 20231006

REACTIONS (3)
  - Erythema multiforme [Recovering/Resolving]
  - Febrile neutropenia [Recovering/Resolving]
  - Off label use [Unknown]

NARRATIVE: CASE EVENT DATE: 20231001
